FAERS Safety Report 21473478 (Version 6)
Quarter: 2022Q4

REPORT INFORMATION
  Report Type: Spontaneous
  Country: DE (occurrence: DE)
  Receive Date: 20221018
  Receipt Date: 20221209
  Transmission Date: 20230113
  Serious: No
  Sender: FDA-Public Use
  Company Number: DE-NOVARTISPH-NVSC2022DE232736

PATIENT
  Age: 36 Year
  Sex: Female

DRUGS (3)
  1. KESIMPTA [Suspect]
     Active Substance: OFATUMUMAB
     Indication: Multiple sclerosis
     Dosage: 20 MG, QMO (EVERY 4 WEEKS)
     Route: 058
     Dates: start: 20210902, end: 2022
  2. KESIMPTA [Suspect]
     Active Substance: OFATUMUMAB
     Dosage: 20 MG, QMO (LAST DOSE)
     Route: 058
     Dates: start: 202209, end: 202209
  3. KESIMPTA [Suspect]
     Active Substance: OFATUMUMAB
     Dosage: 20 MG, QMO (EVERY 4 WEEKS)
     Route: 058
     Dates: start: 2022

REACTIONS (4)
  - C-reactive protein increased [Recovered/Resolved]
  - Cystitis noninfective [Recovered/Resolved]
  - Infection [Unknown]
  - Granulocyte count increased [Unknown]

NARRATIVE: CASE EVENT DATE: 20221001
